FAERS Safety Report 12908004 (Version 2)
Quarter: 2017Q2

REPORT INFORMATION
  Report Type: Spontaneous
  Country: SE (occurrence: SE)
  Receive Date: 20161103
  Receipt Date: 20170522
  Transmission Date: 20170830
  Serious: Yes (Death)
  Sender: FDA-Public Use
  Company Number: SE-TEVA-706750ISR

PATIENT
  Sex: Male

DRUGS (1)
  1. OLANZAPINE ACTAVIS [Suspect]
     Active Substance: OLANZAPINE
     Indication: ACUTE PSYCHOSIS
     Dates: end: 20160623

REACTIONS (2)
  - Ventricular fibrillation [Fatal]
  - Sudden death [Fatal]
